FAERS Safety Report 8046019 (Version 14)
Quarter: 2013Q1

REPORT INFORMATION
  Report Type: Spontaneous
  Country: US (occurrence: US)
  Receive Date: 20110720
  Receipt Date: 20130327
  Transmission Date: 20140127
  Serious: Yes (Hospitalization, Congenital Anomaly, Other)
  Sender: FDA-Public Use
  Company Number: US-PFIZER INC-2011159879

PATIENT
  Sex: Male
  Weight: 2 kg

DRUGS (3)
  1. ZOLOFT [Suspect]
     Indication: DEPRESSION
     Dosage: 100 MG, 1X/DAY
     Route: 064
     Dates: start: 20010118
  2. ZOLOFT [Suspect]
     Dosage: 150 MG, 1X/DAY
     Route: 064
     Dates: start: 20011010
  3. ZOLOFT [Suspect]
     Dosage: UNK
     Route: 064
     Dates: start: 20020609

REACTIONS (19)
  - Maternal exposure timing unspecified [Unknown]
  - Craniosynostosis [Unknown]
  - Feeding disorder neonatal [Recovered/Resolved]
  - Amblyopia [Unknown]
  - Microcephaly [Unknown]
  - Angelman^s syndrome [Unknown]
  - Developmental delay [Unknown]
  - Brachycephaly [Unknown]
  - Strabismus [Unknown]
  - Congenital anomaly [Unknown]
  - Speech disorder developmental [Unknown]
  - Fine motor delay [Unknown]
  - Neurodevelopmental disorder [Unknown]
  - Abnormal palmar/plantar creases [Unknown]
  - Abnormal palmar/plantar creases [Unknown]
  - Autism [Unknown]
  - Convulsion [Unknown]
  - Movement disorder [Unknown]
  - Premature baby [Unknown]
